FAERS Safety Report 5676204-7 (Version None)
Quarter: 2008Q1

REPORT INFORMATION
  Report Type: 
  Country: None (occurrence: None)
  Receive Date: 20080321
  Receipt Date: 20080309
  Transmission Date: 20080703
  Serious: Yes (Other)
  Sender: FDA-Public Use
  Company Number: US-PFIZER INC-2008022872

PATIENT
  Sex: Female
  Weight: 111 kg

DRUGS (4)
  1. CHANTIX [Suspect]
     Indication: SMOKING CESSATION THERAPY
     Route: 048
     Dates: start: 20071201, end: 20080101
  2. ANTIHYPERTENSIVES [Concomitant]
     Indication: HYPERTENSION
  3. ANTIDEPRESSANTS [Concomitant]
     Indication: DEPRESSION
  4. THYROID TAB [Concomitant]
     Indication: THYROID DISORDER

REACTIONS (2)
  - ANXIETY [None]
  - MOOD SWINGS [None]
